FAERS Safety Report 10182877 (Version 1)
Quarter: 2014Q2

REPORT INFORMATION
  Report Type: Spontaneous
  Country: US (occurrence: US)
  Receive Date: 20140520
  Receipt Date: 20140520
  Transmission Date: 20141212
  Serious: No
  Sender: FDA-Public Use
  Company Number: US-AMGEN INC.-USASP2014035252

PATIENT
  Age: 68 Year
  Sex: Female

DRUGS (4)
  1. PROLIA [Suspect]
     Indication: OSTEOPOROSIS POSTMENOPAUSAL
     Route: 065
  2. VITAMIN D                          /00107901/ [Concomitant]
  3. CALCIUM                            /00060701/ [Concomitant]
  4. NABUMETON [Concomitant]
     Indication: ARTHRITIS
     Dosage: 500 MG, BID

REACTIONS (4)
  - Pain in jaw [Recovered/Resolved]
  - Neck pain [Unknown]
  - Back pain [Recovering/Resolving]
  - Pain in extremity [Recovering/Resolving]
